FAERS Safety Report 13071323 (Version 2)
Quarter: 2016Q4

REPORT INFORMATION
  Report Type: Spontaneous
  Country: FR (occurrence: FR)
  Receive Date: 20161229
  Receipt Date: 20161230
  Transmission Date: 20170207
  Serious: Yes (Hospitalization)
  Sender: FDA-Public Use
  Company Number: FR-JNJFOC-20161224017

PATIENT
  Age: 33 Year
  Sex: Female

DRUGS (10)
  1. DUROGESIC [Suspect]
     Active Substance: FENTANYL
     Indication: PRODUCT USED FOR UNKNOWN INDICATION
     Dosage: 1 PATCH OF 100 MCG/HR AND 1 PATCH OF 75 MCG/HR
     Route: 062
     Dates: start: 2013
  2. RIVOTRIL [Suspect]
     Active Substance: CLONAZEPAM
     Indication: PRODUCT USED FOR UNKNOWN INDICATION
     Route: 065
  3. LORMETAZEPAM [Concomitant]
     Active Substance: LORMETAZEPAM
     Dosage: 0-0-1  CONSUMED MANY YEARS AND STOP DURING THE BEGINNING OF THE WEEK BY THE PSYCHIATRIST
     Route: 065
  4. EFFENTORA [Suspect]
     Active Substance: FENTANYL CITRATE
     Indication: PRODUCT USED FOR UNKNOWN INDICATION
     Route: 062
     Dates: start: 2013
  5. NEUPRO [Concomitant]
     Active Substance: ROTIGOTINE
     Dosage: FOR SEVERAL MONTHS
     Route: 065
  6. XANAX [Concomitant]
     Active Substance: ALPRAZOLAM
     Dosage: 1-1-1 STOP DURING THE BEGINNING OF THE WEEK BY THE PSYCHIATRIST
     Route: 065
  7. VALIUM [Concomitant]
     Active Substance: DIAZEPAM
     Dosage: 1-0-1 SINCE THE BEGINNING OF THE WEEK AND PRESCRIBED BY THE PSYCHIATRIST
     Route: 065
  8. ATARAX [Concomitant]
     Active Substance: HYDROXYZINE\HYDROXYZINE HYDROCHLORIDE
     Dosage: 0-0-1 SINCE THE BEGINNING OF THE WEEK AND PRESCRIBED BY THE PSYCHIATRIST
     Route: 065
  9. VERSATIS [Concomitant]
     Active Substance: LIDOCAINE
     Route: 065
  10. SEROPLEX [Concomitant]
     Active Substance: ESCITALOPRAM OXALATE
     Route: 065

REACTIONS (1)
  - Drug dependence [Not Recovered/Not Resolved]
